FAERS Safety Report 8538507-8 (Version None)
Quarter: 2012Q3

REPORT INFORMATION
  Report Type: 
  Country: None (occurrence: None)
  Receive Date: 20120718
  Receipt Date: 20120718
  Transmission Date: 20120928
  Serious: Yes (Life-Threatening, Other)
  Sender: FDA-Public Use
  Company Number: None

PATIENT
  Age: 55 Year
  Sex: Female
  Weight: 127.0072 kg

DRUGS (1)
  1. APIDRA [Suspect]
     Indication: DIABETES MELLITUS
     Dates: start: 20110701

REACTIONS (16)
  - TREMOR [None]
  - PAIN [None]
  - PARAESTHESIA [None]
  - HEADACHE [None]
  - DISTURBANCE IN ATTENTION [None]
  - DYSPNOEA [None]
  - GAIT DISTURBANCE [None]
  - AFFECTIVE DISORDER [None]
  - SYNCOPE [None]
  - HEART RATE INCREASED [None]
  - BLOOD GLUCOSE INCREASED [None]
  - FATIGUE [None]
  - FALL [None]
  - ELECTROCARDIOGRAM ABNORMAL [None]
  - INSOMNIA [None]
  - MEMORY IMPAIRMENT [None]
